FAERS Safety Report 24312946 (Version 1)
Quarter: 2024Q3

REPORT INFORMATION
  Report Type: Spontaneous
  Country: US (occurrence: None)
  Receive Date: 20240912
  Receipt Date: 20240912
  Transmission Date: 20241017
  Serious: Yes (Hospitalization)
  Sender: Public
  Company Number: None

PATIENT
  Age: 66 Year
  Sex: Male

DRUGS (3)
  1. RASUVO [Suspect]
     Active Substance: METHOTREXATE SODIUM
     Indication: Rheumatoid arthritis
     Dosage: 10MG ONCE A WEEK UNDER THE SKIN?
     Route: 058
     Dates: start: 202408
  2. ORENCIA [Concomitant]
     Active Substance: ABATACEPT
  3. PREDNISONE [Concomitant]
     Active Substance: PREDNISONE

REACTIONS (3)
  - Spinal operation [None]
  - Arthralgia [None]
  - Therapy interrupted [None]

NARRATIVE: CASE EVENT DATE: 20240808
